FAERS Safety Report 5008791-6 (Version None)
Quarter: 2006Q2

REPORT INFORMATION
  Report Type: 
  Country: None (occurrence: None)
  Receive Date: 20060518
  Receipt Date: 20060507
  Transmission Date: 20061013
  Serious: Yes (Hospitalization)
  Sender: FDA-Public Use
  Company Number: US-2006-011024

PATIENT
  Age: 79 Year
  Sex: Male

DRUGS (7)
  1. CAMPATH [Suspect]
     Indication: T-CELL PROLYMPHOCYTIC LEUKAEMIA
     Dosage: UNK, SUBCUTANEOUS
     Route: 058
     Dates: start: 20060101, end: 20060401
  2. XOPENEX [Suspect]
     Dosage: RECENTLY INITIATED, UNK
     Route: 065
     Dates: start: 20060401
  3. LABETALOL HCL [Concomitant]
  4. LASIX [Concomitant]
  5. COUMADIN [Concomitant]
  6. GLYBURIDE [Concomitant]
  7. BACTRIM [Concomitant]

REACTIONS (6)
  - ASTHENIA [None]
  - BLOOD GLUCOSE DECREASED [None]
  - COMA [None]
  - DRUG INTERACTION [None]
  - GAIT DISTURBANCE [None]
  - PYREXIA [None]
